FAERS Safety Report 23838271 (Version 1)
Quarter: 2024Q2

REPORT INFORMATION
  Report Type: Spontaneous
  Country: US (occurrence: US)
  Receive Date: 20240509
  Receipt Date: 20240509
  Transmission Date: 20240716
  Serious: No
  Sender: FDA-Public Use
  Company Number: US-INTRA-CELLULAR THERAPIES, INC.-2024ICT00240

PATIENT
  Age: 54 Year
  Sex: Female
  Weight: 65.306 kg

DRUGS (4)
  1. CAPLYTA [Suspect]
     Active Substance: LUMATEPERONE
     Indication: Bipolar disorder
     Dosage: 42 MG, 1X/DAY
     Route: 048
     Dates: start: 20240125
  2. UNSPECIFIED INGREDIENT [Concomitant]
     Active Substance: UNSPECIFIED INGREDIENT
  3. UNSPECIFIED INGREDIENT [Concomitant]
     Active Substance: UNSPECIFIED INGREDIENT
     Dosage: UNK, 1X/DAY AT NIGHT
  4. UNSPECIFIED OVER THE COUNTER MEDICATIONS [Concomitant]

REACTIONS (6)
  - Heart rate variability decreased [Recovering/Resolving]
  - Delusion [Unknown]
  - Middle insomnia [Not Recovered/Not Resolved]
  - Skin burning sensation [Recovering/Resolving]
  - Gait disturbance [Recovering/Resolving]
  - Dry mouth [Not Recovered/Not Resolved]

NARRATIVE: CASE EVENT DATE: 20240125
